FAERS Safety Report 12771175 (Version 2)
Quarter: 2016Q4

REPORT INFORMATION
  Report Type: Spontaneous
  Country: RU (occurrence: RU)
  Receive Date: 20160922
  Receipt Date: 20161206
  Transmission Date: 20170207
  Serious: Yes (Congenital Anomaly)
  Sender: FDA-Public Use
  Company Number: RU-SA-2016SA170115

PATIENT
  Age: 0 Day
  Sex: Male
  Weight: 3.9 kg

DRUGS (4)
  1. CLEXANE [Suspect]
     Active Substance: ENOXAPARIN SODIUM
     Route: 064
  2. PALIN [Concomitant]
     Route: 065
  3. CLEXANE [Suspect]
     Active Substance: ENOXAPARIN SODIUM
     Route: 064
  4. CLEXANE [Suspect]
     Active Substance: ENOXAPARIN SODIUM
     Route: 064

REACTIONS (2)
  - Foetal exposure during pregnancy [Unknown]
  - Hydronephrosis [Unknown]
